FAERS Safety Report 24878176 (Version 1)
Quarter: 2025Q1

REPORT INFORMATION
  Report Type: Spontaneous
  Country: CA (occurrence: CA)
  Receive Date: 20250123
  Receipt Date: 20250123
  Transmission Date: 20250409
  Serious: Yes (Congenital Anomaly)
  Sender: ABBVIE
  Company Number: CA-ABBVIE-6094350

PATIENT

DRUGS (1)
  1. ATOGEPANT [Suspect]
     Active Substance: ATOGEPANT
     Indication: Maternal exposure timing unspecified
     Route: 064

REACTIONS (3)
  - Anomalous pulmonary venous connection [Unknown]
  - Left-to-right cardiac shunt [Unknown]
  - Foetal exposure during pregnancy [Unknown]
